FAERS Safety Report 12848358 (Version 1)
Quarter: 2016Q4

REPORT INFORMATION
  Report Type: Spontaneous
  Country: US (occurrence: US)
  Receive Date: 20161014
  Receipt Date: 20161014
  Transmission Date: 20170207
  Serious: No
  Sender: FDA-Public Use
  Company Number: US-JNJFOC-20160712178

PATIENT
  Age: 78 Year
  Sex: Female

DRUGS (1)
  1. TYLENOL EXTRA STRENGTH [Suspect]
     Active Substance: ACETAMINOPHEN
     Indication: HEADACHE
     Dosage: AS NEEDED TAKE 2 EVERY 6 HOURS
     Route: 048
     Dates: end: 20160712

REACTIONS (2)
  - Incorrect drug administration duration [Unknown]
  - Product commingling [Unknown]
